FAERS Safety Report 19116171 (Version 1)
Quarter: 2021Q2

REPORT INFORMATION
  Report Type: Spontaneous
  Country: MA (occurrence: MA)
  Receive Date: 20210410
  Receipt Date: 20210410
  Transmission Date: 20210717
  Serious: Yes (Hospitalization, Other)
  Sender: FDA-Public Use
  Company Number: MA-EPICPHARMA-MA-2021EPCLIT00358

PATIENT
  Age: 46 Year
  Sex: Male

DRUGS (3)
  1. AMISULPRIDE [Interacting]
     Active Substance: AMISULPRIDE
     Indication: COVID-19
     Route: 065
  2. CHLOROQUINE. [Suspect]
     Active Substance: CHLOROQUINE
     Indication: COVID-19
     Route: 065
  3. AZITHROMYCIN ANHYDROUS. [Suspect]
     Active Substance: AZITHROMYCIN ANHYDROUS
     Indication: COVID-19
     Route: 065

REACTIONS (7)
  - Insomnia [Recovered/Resolved]
  - Disorganised speech [Recovered/Resolved]
  - Affect lability [Recovered/Resolved]
  - Emotional distress [Recovered/Resolved]
  - Abnormal behaviour [Recovered/Resolved]
  - Hallucination, visual [Recovered/Resolved]
  - Electrocardiogram QT prolonged [Recovered/Resolved]
